FAERS Safety Report 15651216 (Version 3)
Quarter: 2019Q1

REPORT INFORMATION
  Report Type: Spontaneous
  Country: US (occurrence: US)
  Receive Date: 20181123
  Receipt Date: 20190205
  Transmission Date: 20190417
  Serious: Yes (Hospitalization, Other)
  Sender: FDA-Public Use
  Company Number: US-ABBVIE-18S-163-2564617-00

PATIENT
  Age: 66 Year
  Sex: Female
  Weight: 72.64 kg

DRUGS (7)
  1. CREON [Suspect]
     Active Substance: PANCRELIPASE AMYLASE\PANCRELIPASE LIPASE\PANCRELIPASE PROTEASE
     Route: 048
     Dates: start: 2017
  2. LOMOTIL [Concomitant]
     Active Substance: ATROPINE SULFATE\DIPHENOXYLATE HYDROCHLORIDE
     Indication: DIARRHOEA
  3. PRILOSEC [Concomitant]
     Active Substance: OMEPRAZOLE MAGNESIUM
     Indication: GASTRIC DISORDER
  4. CREON [Suspect]
     Active Substance: PANCRELIPASE AMYLASE\PANCRELIPASE LIPASE\PANCRELIPASE PROTEASE
     Indication: PANCREATIC FAILURE
     Dosage: 3 PER MEAL?1 PER SNACK
     Route: 048
     Dates: start: 2008, end: 2012
  5. MULTI VITAMINS [Concomitant]
     Active Substance: VITAMINS
     Indication: VITAMIN SUPPLEMENTATION
  6. VITAMIN D3 [Concomitant]
     Active Substance: CHOLECALCIFEROL
     Indication: VITAMIN D
  7. CALCIUM [Concomitant]
     Active Substance: CALCIUM
     Indication: MINERAL SUPPLEMENTATION

REACTIONS (38)
  - Intra-abdominal fluid collection [Unknown]
  - Cellulitis [Unknown]
  - Recurrent cancer [Unknown]
  - Pancreatectomy [Unknown]
  - Oncologic complication [Unknown]
  - Cystitis [Unknown]
  - Panic disorder [Unknown]
  - Infection [Recovered/Resolved]
  - Arterial injury [Unknown]
  - Micrographic skin surgery [Unknown]
  - Iron deficiency anaemia [Unknown]
  - Pain [Unknown]
  - Agoraphobia [Unknown]
  - Dehydration [Recovered/Resolved]
  - Recurrent cancer [Unknown]
  - Small intestine operation [Unknown]
  - Hernia repair [Unknown]
  - Hernia repair [Unknown]
  - Hypokalaemia [Unknown]
  - Microcytic anaemia [Unknown]
  - Colectomy [Unknown]
  - Abscess drainage [Unknown]
  - Recurrent cancer [Unknown]
  - Liposarcoma [Unknown]
  - Pyrexia [Unknown]
  - Glucose tolerance impaired [Unknown]
  - Acute kidney injury [Unknown]
  - Sepsis [Unknown]
  - Embolism venous [Unknown]
  - Major depression [Unknown]
  - Colon operation [Unknown]
  - Vomiting [Unknown]
  - Cataract [Unknown]
  - Stent placement [Unknown]
  - Malignant melanoma in situ [Unknown]
  - Iron deficiency [Unknown]
  - Nausea [Unknown]
  - Aneurysm repair [Unknown]

NARRATIVE: CASE EVENT DATE: 2008
